FAERS Safety Report 11696839 (Version 1)
Quarter: 2015Q4

REPORT INFORMATION
  Report Type: Spontaneous
  Country: US (occurrence: US)
  Receive Date: 20151104
  Receipt Date: 20151104
  Transmission Date: 20160304
  Serious: No
  Sender: FDA-Public Use
  Company Number: US-PERRIGO-15US009605

PATIENT
  Age: 61 Year
  Sex: Female
  Weight: 64.85 kg

DRUGS (3)
  1. CRESTOR [Concomitant]
     Active Substance: ROSUVASTATIN CALCIUM
     Indication: AORTIC BYPASS
     Dosage: UNK
     Route: 065
     Dates: start: 2006
  2. MESALAZINE [Suspect]
     Active Substance: MESALAMINE
     Indication: PROCTITIS
     Dosage: 4 G, PRN
     Route: 054
     Dates: start: 201509, end: 201509
  3. ST. JOSEPH ASPIRIN [Concomitant]
     Indication: AORTIC BYPASS
     Dosage: UNK
     Route: 065
     Dates: start: 2006

REACTIONS (1)
  - Anorectal discomfort [Recovered/Resolved]

NARRATIVE: CASE EVENT DATE: 201509
